FAERS Safety Report 7392353-X (Version None)
Quarter: 2011Q2

REPORT INFORMATION
  Report Type: 
  Country: None (occurrence: None)
  Receive Date: 20110404
  Receipt Date: 20110331
  Transmission Date: 20111010
  Serious: No
  Sender: FDA-Public Use
  Company Number: US-PFIZER INC-2011059795

PATIENT
  Age: 19 Year
  Sex: Male
  Weight: 63.5 kg

DRUGS (1)
  1. CAMPTOSAR [Suspect]
     Indication: EWING'S SARCOMA
     Dosage: 50 MG/M2, DAILY
     Route: 042
     Dates: start: 20110315

REACTIONS (3)
  - ASPARTATE AMINOTRANSFERASE INCREASED [None]
  - ALANINE AMINOTRANSFERASE INCREASED [None]
  - LIVER FUNCTION TEST ABNORMAL [None]
